FAERS Safety Report 8552360-8 (Version None)
Quarter: 2012Q3

REPORT INFORMATION
  Report Type: 
  Country: None (occurrence: None)
  Receive Date: 20120718
  Receipt Date: 20120702
  Transmission Date: 20120928
  Serious: Yes (Hospitalization)
  Sender: FDA-Public Use
  Company Number: ACO_30436_2012

PATIENT
  Age: 53 Year
  Sex: Female

DRUGS (11)
  1. AMITRIPTYLINE HCL [Concomitant]
  2. LISINOPRIL [Concomitant]
  3. BISOPROLOL FUMARATE [Concomitant]
  4. TORSEMIDE [Concomitant]
  5. IBUPROFEN [Concomitant]
  6. GABAPENTIN [Concomitant]
  7. BACLOFEN [Concomitant]
  8. AMPYRA [Suspect]
     Indication: MULTIPLE SCLEROSIS
     Dosage: 10 MG, BID, ORAL
     Route: 048
     Dates: start: 20120518, end: 20120518
  9. MORPHINE SULFATE INJ [Concomitant]
  10. OMEPRAZOLE [Concomitant]
  11. FLUNAZUL DERM (FLUCONAZOLE) [Concomitant]

REACTIONS (16)
  - BODY TEMPERATURE DECREASED [None]
  - BLOOD CREATINE PHOSPHOKINASE INCREASED [None]
  - GAMMA-GLUTAMYLTRANSFERASE INCREASED [None]
  - PROTEIN URINE PRESENT [None]
  - COMA [None]
  - VOMITING [None]
  - BLOOD PRESSURE DECREASED [None]
  - C-REACTIVE PROTEIN INCREASED [None]
  - PROTEIN TOTAL DECREASED [None]
  - WHITE BLOOD CELLS URINE POSITIVE [None]
  - RED BLOOD CELLS URINE POSITIVE [None]
  - RENAL IMPAIRMENT [None]
  - DRUG INTERACTION [None]
  - WHITE BLOOD CELL COUNT INCREASED [None]
  - TOXICITY TO VARIOUS AGENTS [None]
  - BRADYCARDIA [None]
